FAERS Safety Report 15395786 (Version 8)
Quarter: 2018Q4

REPORT INFORMATION
  Report Type: Report from Study
  Country: RO (occurrence: RO)
  Receive Date: 20180918
  Receipt Date: 20181109
  Transmission Date: 20190204
  Serious: Yes (Hospitalization)
  Sender: FDA-Public Use
  Company Number: RO-ROCHE-2175668

PATIENT
  Age: 57 Year
  Sex: Male
  Weight: 90.6 kg

DRUGS (9)
  1. NEBIVOLOLUM [Concomitant]
     Route: 048
     Dates: start: 2005
  2. ETORICOXIB. [Concomitant]
     Active Substance: ETORICOXIB
     Indication: BACK PAIN
     Route: 048
     Dates: start: 20180531
  3. TRAMADOLUM [Concomitant]
     Route: 048
     Dates: start: 20180712, end: 20180802
  4. ETORICOXIB. [Concomitant]
     Active Substance: ETORICOXIB
     Indication: BACK PAIN
     Route: 048
     Dates: start: 20180531
  5. ATEZOLIZUMAB. [Suspect]
     Active Substance: ATEZOLIZUMAB
     Indication: BLADDER CANCER
     Dosage: ON 02/AUG/2018 RECEIEVED MOST RECENT DOSE OF ATEZOLIZUMAB PRIOR TO AE ONSET:
     Route: 042
     Dates: start: 20171212
  6. ACETAMINOFEN [Suspect]
     Active Substance: ACETAMINOPHEN
     Indication: BACK PAIN
     Route: 048
     Dates: start: 20180712, end: 20180802
  7. TRAMADOLUM [Concomitant]
     Indication: BACK PAIN
     Route: 048
     Dates: start: 20180802, end: 20180822
  8. DESLORATADINUM [Concomitant]
     Indication: ERYTHEMA
     Route: 048
     Dates: start: 20180512
  9. ACETAMINOFEN [Suspect]
     Active Substance: ACETAMINOPHEN
     Route: 048
     Dates: start: 20180802, end: 20180822

REACTIONS (1)
  - Acute hepatitis B [Recovered/Resolved]

NARRATIVE: CASE EVENT DATE: 20180822
